FAERS Safety Report 20798160 (Version 1)
Quarter: 2022Q2

REPORT INFORMATION
  Report Type: Spontaneous
  Country: US (occurrence: US)
  Receive Date: 20220507
  Receipt Date: 20220507
  Transmission Date: 20220720
  Serious: No
  Sender: FDA-Public Use
  Company Number: US-BRISTOL-MYERS SQUIBB COMPANY-2022-032851

PATIENT
  Age: 78 Year
  Sex: Male

DRUGS (1)
  1. REVLIMID [Suspect]
     Active Substance: LENALIDOMIDE
     Indication: Immunosuppressant drug therapy
     Dosage: TAKE 1 CAPSULE BY  MOUTH DAILY FOR 21 DAYS ON THEN 7 DAYS OFF OF ?EACH 28 DAY CYCLE.
     Route: 048
     Dates: start: 20220325

REACTIONS (2)
  - Rash [Not Recovered/Not Resolved]
  - Intentional product use issue [Unknown]
